FAERS Safety Report 10227587 (Version 32)
Quarter: 2016Q2

REPORT INFORMATION
  Report Type: Spontaneous
  Country: CA (occurrence: CA)
  Receive Date: 20140610
  Receipt Date: 20160415
  Transmission Date: 20160815
  Serious: Yes (Hospitalization, Other)
  Sender: FDA-Public Use
  Company Number: CA-ROCHE-1411673

PATIENT
  Age: 57 Year
  Sex: Female

DRUGS (37)
  1. XOLAIR [Suspect]
     Active Substance: OMALIZUMAB
     Route: 058
     Dates: start: 20150520
  2. VENTOLIN [Concomitant]
     Active Substance: ALBUTEROL SULFATE
     Route: 065
     Dates: start: 20130529
  3. XOLAIR [Suspect]
     Active Substance: OMALIZUMAB
     Indication: ASTHMA
     Route: 058
     Dates: start: 20130529
  4. XOLAIR [Suspect]
     Active Substance: OMALIZUMAB
     Route: 058
     Dates: start: 20130820
  5. XOLAIR [Suspect]
     Active Substance: OMALIZUMAB
     Route: 058
     Dates: start: 20150121
  6. XOLAIR [Suspect]
     Active Substance: OMALIZUMAB
     Route: 058
     Dates: start: 20150826
  7. XOLAIR [Suspect]
     Active Substance: OMALIZUMAB
     Route: 058
     Dates: start: 20140303
  8. XOLAIR [Suspect]
     Active Substance: OMALIZUMAB
     Route: 058
     Dates: start: 20140401
  9. XOLAIR [Suspect]
     Active Substance: OMALIZUMAB
     Route: 058
     Dates: start: 20140625
  10. XOLAIR [Suspect]
     Active Substance: OMALIZUMAB
     Route: 058
     Dates: start: 20140820
  11. XOLAIR [Suspect]
     Active Substance: OMALIZUMAB
     Route: 058
     Dates: start: 20150319
  12. XOLAIR [Suspect]
     Active Substance: OMALIZUMAB
     Route: 058
     Dates: start: 20150629
  13. XOLAIR [Suspect]
     Active Substance: OMALIZUMAB
     Route: 058
     Dates: start: 20151021
  14. XOLAIR [Suspect]
     Active Substance: OMALIZUMAB
     Route: 058
     Dates: start: 20160209
  15. CLONIDINE. [Concomitant]
     Active Substance: CLONIDINE
     Route: 065
     Dates: start: 2005
  16. SALBUTAMOL [Concomitant]
     Active Substance: ALBUTEROL
     Route: 065
     Dates: end: 20141112
  17. REACTINE (CANADA) [Concomitant]
     Active Substance: CETIRIZINE HYDROCHLORIDE
     Dosage: DAY BEFORE AND 1 DAY AFTER THE OMALIZUMAB INJECTION
     Route: 065
  18. XOLAIR [Suspect]
     Active Substance: OMALIZUMAB
     Route: 058
     Dates: start: 20150420
  19. XOLAIR [Suspect]
     Active Substance: OMALIZUMAB
     Route: 058
     Dates: start: 20160223
  20. XOLAIR [Suspect]
     Active Substance: OMALIZUMAB
     Route: 058
     Dates: start: 20140204
  21. XOLAIR [Suspect]
     Active Substance: OMALIZUMAB
     Route: 058
     Dates: start: 20141125
  22. XOLAIR [Suspect]
     Active Substance: OMALIZUMAB
     Route: 058
     Dates: start: 20150909
  23. REACTINE (CANADA) [Concomitant]
     Active Substance: CETIRIZINE HYDROCHLORIDE
     Dosage: 3 DAYS BEFORE HER OMALIZUMAB INJECTIONS ONCE A DAY AND 3 DAYS AFTER THE INJECTION, ONCE A DAY
     Route: 065
  24. XOLAIR [Suspect]
     Active Substance: OMALIZUMAB
     Route: 058
     Dates: start: 20140528
  25. XOLAIR [Suspect]
     Active Substance: OMALIZUMAB
     Route: 058
     Dates: start: 20140918
  26. XOLAIR [Suspect]
     Active Substance: OMALIZUMAB
     Route: 058
     Dates: start: 20150401
  27. XOLAIR [Suspect]
     Active Substance: OMALIZUMAB
     Route: 058
     Dates: start: 20150506
  28. XOLAIR [Suspect]
     Active Substance: OMALIZUMAB
     Route: 058
     Dates: start: 20150603
  29. XOLAIR [Suspect]
     Active Substance: OMALIZUMAB
     Route: 058
     Dates: start: 20160323
  30. XOLAIR [Suspect]
     Active Substance: OMALIZUMAB
     Route: 058
     Dates: start: 20140723
  31. XOLAIR [Suspect]
     Active Substance: OMALIZUMAB
     Route: 058
     Dates: start: 20150617
  32. XOLAIR [Suspect]
     Active Substance: OMALIZUMAB
     Route: 058
     Dates: start: 20150715
  33. PULMICORT TURBUHALER [Concomitant]
     Active Substance: BUDESONIDE
     Route: 065
     Dates: end: 20141112
  34. XOLAIR [Suspect]
     Active Substance: OMALIZUMAB
     Route: 058
     Dates: start: 20150923
  35. XOLAIR [Suspect]
     Active Substance: OMALIZUMAB
     Route: 058
     Dates: start: 20160406
  36. XOLAIR [Suspect]
     Active Substance: OMALIZUMAB
     Route: 058
     Dates: start: 20160310
  37. AZITHROMYCIN ANHYDROUS. [Concomitant]
     Active Substance: AZITHROMYCIN ANHYDROUS
     Route: 048

REACTIONS (42)
  - Pulmonary embolism [Unknown]
  - Lower respiratory tract infection [Recovering/Resolving]
  - Bronchitis [Unknown]
  - Infection [Unknown]
  - Sneezing [Unknown]
  - Somnolence [Unknown]
  - Nasopharyngitis [Recovered/Resolved]
  - Sputum increased [Unknown]
  - Pulmonary mycosis [Unknown]
  - Cystitis [Unknown]
  - Hypothyroidism [Unknown]
  - Concomitant disease progression [Unknown]
  - Respiratory distress [Unknown]
  - Pulmonary function test abnormal [Unknown]
  - Diarrhoea [Unknown]
  - Breath sounds abnormal [Unknown]
  - Aspergillus infection [Unknown]
  - Rheumatoid arthritis [Unknown]
  - Hypotension [Unknown]
  - Dyspnoea [Not Recovered/Not Resolved]
  - Influenza like illness [Recovered/Resolved]
  - Influenza [Recovered/Resolved]
  - Productive cough [Unknown]
  - Malaise [Unknown]
  - Migraine [Unknown]
  - Injection site bruising [Unknown]
  - Headache [Unknown]
  - Pyrexia [Recovering/Resolving]
  - Hypersensitivity [Unknown]
  - Respiratory moniliasis [Unknown]
  - Hypoventilation [Unknown]
  - Hepatic enzyme increased [Unknown]
  - Pulmonary pain [Unknown]
  - Sinusitis [Recovering/Resolving]
  - Cough [Not Recovered/Not Resolved]
  - Urinary tract infection [Unknown]
  - Oxygen saturation decreased [Recovering/Resolving]
  - Red blood cell count increased [Unknown]
  - Drug administered at inappropriate site [Unknown]
  - Blood pressure increased [Unknown]
  - Viral infection [Recovered/Resolved]
  - Rales [Unknown]

NARRATIVE: CASE EVENT DATE: 20130723
